FAERS Safety Report 8352400-5 (Version None)
Quarter: 2012Q2

REPORT INFORMATION
  Report Type: 
  Country: None (occurrence: None)
  Receive Date: 20120511
  Receipt Date: 20120504
  Transmission Date: 20120825
  Serious: Yes (Other)
  Sender: FDA-Public Use
  Company Number: US-PFIZER INC-2011072569

PATIENT
  Sex: Female
  Weight: 83.9 kg

DRUGS (3)
  1. COREG [Concomitant]
     Indication: CARDIAC DISORDER
     Dosage: UNK
  2. ATACAND [Concomitant]
     Indication: HYPERTENSION
     Dosage: UNK
  3. PRISTIQ [Suspect]
     Dosage: 50 MG, 2X/DAY
     Route: 048

REACTIONS (9)
  - SUICIDAL IDEATION [None]
  - AMNESIA [None]
  - MYOCARDIAL INFARCTION [None]
  - CARDIAC FAILURE [None]
  - MALAISE [None]
  - MEMORY IMPAIRMENT [None]
  - DEPRESSION [None]
  - ARTERIAL OCCLUSIVE DISEASE [None]
  - CRYING [None]
